FAERS Safety Report 11176819 (Version 1)
Quarter: 2015Q2

REPORT INFORMATION
  Report Type: Spontaneous
  Country: US (occurrence: US)
  Receive Date: 20150610
  Receipt Date: 20150610
  Transmission Date: 20150821
  Serious: Yes (Other)
  Sender: FDA-Public Use
  Company Number: US-CIPLA LTD.-2015US04504

PATIENT

DRUGS (2)
  1. CARBOPLATIN. [Suspect]
     Active Substance: CARBOPLATIN
     Indication: BREAST CANCER
     Dosage: 6 AUC ON DAY 1 OF A 21 DAY CYCLE OVER 30 MIN FOR FOUR CYCLES
     Route: 042
  2. ERIBULIN [Suspect]
     Active Substance: ERIBULIN
     Indication: BREAST CANCER
     Dosage: AUC 6, ON DAY 1 OF A 21 DAY CYCLE OVER 30 MIN, OVER 1 CYCLE
     Route: 042

REACTIONS (2)
  - Drug intolerance [Unknown]
  - Acute myeloid leukaemia [Unknown]
